FAERS Safety Report 16063836 (Version 3)
Quarter: 2019Q2

REPORT INFORMATION
  Report Type: Report from Study
  Country: CA (occurrence: CA)
  Receive Date: 20190312
  Receipt Date: 20190416
  Transmission Date: 20190711
  Serious: Yes (Other)
  Sender: FDA-Public Use
  Company Number: CA-JNJFOC-20190214657

PATIENT
  Age: 65 Year
  Sex: Female
  Weight: 57.4 kg

DRUGS (6)
  1. TENORMIN [Concomitant]
     Active Substance: ATENOLOL
     Route: 048
  2. STELARA [Suspect]
     Active Substance: USTEKINUMAB
     Indication: CROHN^S DISEASE
     Dosage: STRENGTH = 130 MG
     Route: 058
     Dates: start: 20181218
  3. STELARA [Suspect]
     Active Substance: USTEKINUMAB
     Indication: CROHN^S DISEASE
     Route: 058
     Dates: start: 20190211
  4. CORTISONE [Concomitant]
     Active Substance: CORTISONE\HYDROCORTISONE
     Dates: end: 20190131
  5. VIT D [Concomitant]
     Active Substance: VITAMIN D NOS
     Route: 048
  6. TENORMIN [Concomitant]
     Active Substance: ATENOLOL
     Route: 048

REACTIONS (6)
  - Cardiac murmur [Unknown]
  - Cellulitis [Unknown]
  - Hypoaesthesia [Unknown]
  - Crohn^s disease [Recovering/Resolving]
  - Fear [Unknown]
  - Anaemia [Unknown]

NARRATIVE: CASE EVENT DATE: 2019
